FAERS Safety Report 8185255-2 (Version None)
Quarter: 2012Q1

REPORT INFORMATION
  Report Type: 
  Country: None (occurrence: None)
  Receive Date: 20120305
  Receipt Date: 20120223
  Transmission Date: 20120608
  Serious: Yes (Other)
  Sender: FDA-Public Use
  Company Number: PHHY2011CA105868

PATIENT
  Sex: Female

DRUGS (1)
  1. SANDOSTATIN LAR [Suspect]
     Indication: CARCINOID TUMOUR
     Dosage: 20 MG ONCE A MONTH
     Route: 030
     Dates: start: 20101217

REACTIONS (4)
  - WEIGHT INCREASED [None]
  - NAUSEA [None]
  - MUSCULOSKELETAL STIFFNESS [None]
  - DIARRHOEA [None]
